FAERS Safety Report 9882054 (Version 2)
Quarter: 2014Q1

REPORT INFORMATION
  Report Type: Report from Study
  Country: KR (occurrence: KR)
  Receive Date: 20140207
  Receipt Date: 20140218
  Transmission Date: 20141002
  Serious: Yes (Hospitalization)
  Sender: FDA-Public Use
  Company Number: KR-GLAXOSMITHKLINE-Z0020194C

PATIENT
  Age: 54 Year
  Sex: Female
  Weight: 50.6 kg

DRUGS (2)
  1. BELIMUMAB [Suspect]
     Indication: LUPUS NEPHRITIS
     Dosage: 10MGK CYCLIC
     Route: 042
     Dates: start: 20130531
  2. MYCOPHENOLATE MOFETIL [Suspect]
     Indication: SYSTEMIC LUPUS ERYTHEMATOSUS
     Dosage: 1000MG TWICE PER DAY
     Route: 048
     Dates: start: 20131116, end: 20140129

REACTIONS (1)
  - Febrile neutropenia [Recovered/Resolved]
